FAERS Safety Report 13286838 (Version 1)
Quarter: 2017Q1

REPORT INFORMATION
  Report Type: Spontaneous
  Country: US (occurrence: US)
  Receive Date: 20170302
  Receipt Date: 20170302
  Transmission Date: 20170428
  Serious: No
  Sender: FDA-Public Use
  Company Number: US-PERRIGO-16US022790

PATIENT
  Sex: Male

DRUGS (1)
  1. SELENIUM SULFIDE. [Suspect]
     Active Substance: SELENIUM SULFIDE
     Indication: FUNGAL INFECTION
     Dosage: UNKNOWN, SINGLE
     Route: 061
     Dates: start: 201612, end: 201612

REACTIONS (3)
  - Pruritus [Unknown]
  - Incorrect drug administration duration [Recovered/Resolved]
  - Skin exfoliation [Unknown]

NARRATIVE: CASE EVENT DATE: 201612
